FAERS Safety Report 11995811 (Version 1)
Quarter: 2016Q1

REPORT INFORMATION
  Report Type: Spontaneous
  Country: BR (occurrence: BR)
  Receive Date: 20160203
  Receipt Date: 20160203
  Transmission Date: 20160526
  Serious: Yes (Other)
  Sender: FDA-Public Use
  Company Number: BR-SA-2016SA016757

PATIENT
  Age: 63 Year
  Sex: Male
  Weight: 120 kg

DRUGS (26)
  1. METOCLOPRAMIDE. [Concomitant]
     Active Substance: METOCLOPRAMIDE
     Dosage: STRENGTH: 10MG
  2. BROMAZEPAM [Concomitant]
     Active Substance: BROMAZEPAM
  3. MIDAZOLAM [Concomitant]
     Active Substance: MIDAZOLAM\MIDAZOLAM HYDROCHLORIDE
     Indication: SEDATION
     Dosage: STRENGTH: 5 MG/ML
     Dates: start: 201512
  4. ATORVASTATIN CALCIUM. [Concomitant]
     Active Substance: ATORVASTATIN CALCIUM
  5. MORPHINE HYDROCHLORIDE [Concomitant]
     Active Substance: MORPHINE HYDROCHLORIDE
     Dosage: 10MG/ML - 1M
  6. ONDANSETRON [Concomitant]
     Active Substance: ONDANSETRON
     Dosage: STRENGTH: 8 MG
  7. AMIODARONE HYDROCHLORIDE. [Concomitant]
     Active Substance: AMIODARONE HYDROCHLORIDE
  8. BISACODYL. [Concomitant]
     Active Substance: BISACODYL
  9. INSULIN HUMAN [Concomitant]
     Active Substance: INSULIN HUMAN
  10. CLOPIDOGREL BISULFATE. [Suspect]
     Active Substance: CLOPIDOGREL BISULFATE
     Dosage: STRENGTH: 300 MG
     Route: 065
     Dates: start: 201512
  11. VANCOMYCIN HYDROCHLORIDE. [Concomitant]
     Active Substance: VANCOMYCIN HYDROCHLORIDE
     Dosage: STRENGTH: 500 MG
  12. METHADONE [Concomitant]
     Active Substance: METHADONE HYDROCHLORIDE
  13. QUETIAPINE [Concomitant]
     Active Substance: QUETIAPINE
  14. ISORDIL [Concomitant]
     Active Substance: ISOSORBIDE DINITRATE
     Dates: start: 201512
  15. L-THYROXINE [Concomitant]
     Active Substance: LEVOTHYROXINE
     Dosage: DOSE: 25MC
  16. AAS [Suspect]
     Active Substance: ASPIRIN
     Dosage: STRENGTH: 300 MG
     Route: 065
     Dates: start: 201512
  17. DULOXETINE. [Concomitant]
     Active Substance: DULOXETINE
  18. HALOPERIDOL. [Concomitant]
     Active Substance: HALOPERIDOL
     Dosage: STRENGTH: 5 MG
  19. AMPHOTERICIN B. [Concomitant]
     Active Substance: AMPHOTERICIN B
  20. NOREPINEPHRINE [Concomitant]
     Active Substance: NOREPINEPHRINE\NOREPINEPHRINE BITARTRATE
     Dosage: STRENGTH: 1 MG/ML
  21. DOBUTAMINE [Concomitant]
     Active Substance: DOBUTAMINE\DOBUTAMINE HYDROCHLORIDE
     Dosage: STRENGTH: 12.5 MG/ML
  22. PANTOPRAZOLE [Concomitant]
     Active Substance: PANTOPRAZOLE SODIUM
  23. POTASSIUM CHLORIDE. [Concomitant]
     Active Substance: POTASSIUM CHLORIDE
  24. DIPYRONE [Concomitant]
     Active Substance: DIPYRONE
     Dosage: 1G/2 ML AMPULE
  25. ENOXAPARIN [Concomitant]
     Active Substance: ENOXAPARIN
     Dates: start: 201512
  26. FENTANYL CITRATE. [Concomitant]
     Active Substance: FENTANYL CITRATE
     Dosage: STRENGTH: 0.05MG/ML

REACTIONS (4)
  - Hypotension [Recovering/Resolving]
  - Endotracheal intubation [Unknown]
  - Bradycardia [Recovering/Resolving]
  - Agitation [Unknown]

NARRATIVE: CASE EVENT DATE: 201512
